FAERS Safety Report 14751800 (Version 2)
Quarter: 2018Q2

REPORT INFORMATION
  Report Type: Report from Study
  Country: US (occurrence: US)
  Receive Date: 20180412
  Receipt Date: 20180611
  Transmission Date: 20180711
  Serious: Yes (Hospitalization, Other)
  Sender: FDA-Public Use
  Company Number: US-BAYER-2018-065705

PATIENT
  Age: 62 Year
  Sex: Male

DRUGS (3)
  1. NEXAVAR [Suspect]
     Active Substance: SORAFENIB
     Indication: HEPATIC CANCER
     Dosage: 400 MG, BID
     Route: 048
  2. NEXAVAR [Suspect]
     Active Substance: SORAFENIB
     Indication: HEPATIC CANCER
     Dosage: 400 MG, BID
     Route: 048
     Dates: start: 20180223, end: 20180320
  3. LOVENOX [Concomitant]
     Active Substance: ENOXAPARIN SODIUM

REACTIONS (10)
  - Rash [Unknown]
  - Pain of skin [Recovered/Resolved]
  - Erythema [Recovered/Resolved]
  - Sepsis [Unknown]
  - Skin fissures [Recovered/Resolved]
  - Facial pain [Recovered/Resolved]
  - Gait inability [None]
  - Blood pressure abnormal [None]
  - Swelling face [Recovered/Resolved]
  - Alopecia [None]

NARRATIVE: CASE EVENT DATE: 2018
